FAERS Safety Report 7996042-X (Version None)
Quarter: 2011Q4

REPORT INFORMATION
  Report Type: 
  Country: None (occurrence: None)
  Receive Date: 20111216
  Receipt Date: 20111205
  Transmission Date: 20120403
  Serious: Yes (Life-Threatening, Hospitalization, Other)
  Sender: FDA-Public Use
  Company Number: 2011MA017320

PATIENT
  Age: 45 Year
  Sex: Male

DRUGS (4)
  1. ALBUTEROL SULFATE [Suspect]
     Indication: CONDITION AGGRAVATED
     Dosage: INH
     Route: 055
  2. ALBUTEROL SULFATE [Suspect]
     Indication: ASTHMA
     Dosage: INH
     Route: 055
  3. METHYLPREDNISOLONE [Suspect]
     Indication: ASTHMA
     Dosage: IV
     Route: 042
  4. METHYLPREDNISOLONE [Suspect]
     Indication: CONDITION AGGRAVATED
     Dosage: IV
     Route: 042

REACTIONS (5)
  - LEUKOCYTOSIS [None]
  - ASTHMA [None]
  - SINUS TACHYCARDIA [None]
  - CONDITION AGGRAVATED [None]
  - RESPIRATORY FAILURE [None]
